FAERS Safety Report 6827150-4 (Version None)
Quarter: 2010Q3

REPORT INFORMATION
  Report Type: 
  Country: None (occurrence: None)
  Receive Date: 20100709
  Receipt Date: 20100629
  Transmission Date: 20110219
  Serious: Yes (Hospitalization)
  Sender: FDA-Public Use
  Company Number: US-ELI_LILLY_AND_COMPANY-US201006007941

PATIENT
  Sex: Female

DRUGS (3)
  1. HUMATROPE [Suspect]
     Indication: HYPERPITUITARISM
     Dosage: 0.5 MG, UNKNOWN
  2. HUMATROPE [Suspect]
     Dosage: 0.3 MG, UNKNOWN
  3. HORMONES [Concomitant]

REACTIONS (12)
  - BACTERIAL INFECTION [None]
  - DIARRHOEA [None]
  - DIZZINESS [None]
  - DRUG LEVEL DECREASED [None]
  - GASTROENTERITIS [None]
  - HERPES ZOSTER [None]
  - INCORRECT DOSE ADMINISTERED [None]
  - INFLUENZA [None]
  - MALAISE [None]
  - NERVOUSNESS [None]
  - NEURALGIA [None]
  - VOMITING [None]
